FAERS Safety Report 4828499-7 (Version None)
Quarter: 2005Q4

REPORT INFORMATION
  Report Type: 
  Country: None (occurrence: None)
  Receive Date: 20051110
  Receipt Date: 20051028
  Transmission Date: 20060501
  Serious: No
  Sender: FDA-Public Use
  Company Number: 05-0131PO

PATIENT
  Age: 85 Year
  Sex: Female

DRUGS (3)
  1. MEFENAMIC ACID [Suspect]
     Indication: INGROWING NAIL
     Dosage: 500 MG, ORAL
     Route: 048
     Dates: start: 20050927, end: 20050929
  2. ANASTROZOLE [Concomitant]
  3. COVERSUM [Concomitant]

REACTIONS (6)
  - ANAEMIA [None]
  - GASTRIC HAEMORRHAGE [None]
  - HYPOKALAEMIA [None]
  - RECTAL HAEMORRHAGE [None]
  - RENAL FAILURE [None]
  - SYNCOPE VASOVAGAL [None]
